FAERS Safety Report 11455258 (Version 2)
Quarter: 2015Q3

REPORT INFORMATION
  Report Type: Spontaneous
  Country: US (occurrence: None)
  Receive Date: 20150903
  Receipt Date: 20150929
  Transmission Date: 20151125
  Serious: Yes (Other)
  Sender: FDA-Public Use
  Company Number: US-MDT-ADR-2015-01690

PATIENT
  Age: 8 Year
  Sex: Female

DRUGS (1)
  1. LIORESAL [Suspect]
     Active Substance: BACLOFEN
     Indication: MUSCLE SPASTICITY
     Dosage: 375MCG/DAY

REACTIONS (4)
  - Pyrexia [None]
  - Wound complication [None]
  - White blood cell count increased [None]
  - Implant site infection [None]
